FAERS Safety Report 18347101 (Version 1)
Quarter: 2020Q4

REPORT INFORMATION
  Report Type: Spontaneous
  Country: FR (occurrence: FR)
  Receive Date: 20201006
  Receipt Date: 20201006
  Transmission Date: 20210114
  Serious: Yes (Hospitalization, Other)
  Sender: FDA-Public Use
  Company Number: FR-AUROBINDO-AUR-APL-2020-050433

PATIENT
  Age: 58 Year
  Sex: Male
  Weight: 100 kg

DRUGS (2)
  1. IBUPROFEN. [Suspect]
     Active Substance: IBUPROFEN
     Indication: PAROTITIS
     Dosage: UNK
     Route: 065
     Dates: start: 20191115, end: 20191116
  2. PRISTINAMYCINE [Suspect]
     Active Substance: PRISTINAMYCIN
     Indication: PAROTITIS
     Dosage: UNK
     Route: 048
     Dates: start: 20191115, end: 20191116

REACTIONS (3)
  - Pyrexia [Recovered/Resolved]
  - Erythema multiforme [Recovered/Resolved]
  - Eosinophilia [Recovered/Resolved]

NARRATIVE: CASE EVENT DATE: 20191116
